FAERS Safety Report 8854314 (Version 1)
Quarter: 2012Q4

REPORT INFORMATION
  Report Type: 
  Country: BR (occurrence: BR)
  Receive Date: 20121023
  Receipt Date: 20121023
  Transmission Date: 20130627
  Serious: Yes (Hospitalization)
  Sender: FDA-Public Use
  Company Number: BR-ROCHE-1146922

PATIENT
  Age: 50 Year
  Sex: Male
  Weight: 70 kg

DRUGS (13)
  1. ACTEMRA [Suspect]
     Indication: CHRONIC INFANTILE NEUROLOGICAL CUTANEOUS AND ARTICULAR SYNDROME
     Route: 042
     Dates: start: 20120117, end: 20120215
  2. FOLIC ACID [Concomitant]
     Route: 048
  3. CALCIUM CARBONATE [Concomitant]
     Route: 048
  4. CYCLOBENZAPRINE [Concomitant]
     Route: 065
  5. CHOLECALCIFEROL [Concomitant]
     Route: 048
  6. GLICLAZIDE [Concomitant]
     Route: 048
  7. HYDROXYZINE [Concomitant]
     Route: 048
  8. LEVOTHYROXINE [Concomitant]
     Route: 048
  9. METFORMIN [Concomitant]
     Route: 048
  10. OMEPRAZOLE [Concomitant]
     Route: 048
  11. OXYCODONE [Concomitant]
     Route: 048
  12. PREDNISONE [Concomitant]
     Route: 048
  13. SALINE SOLUTION [Concomitant]

REACTIONS (4)
  - Dyspnoea [Recovered/Resolved]
  - Hypotension [Recovered/Resolved]
  - Bradycardia [Recovered/Resolved]
  - Hypothermia [Recovered/Resolved]
